FAERS Safety Report 5422831-1 (Version None)
Quarter: 2007Q3

REPORT INFORMATION
  Report Type: 
  Country: None (occurrence: None)
  Receive Date: 20070730
  Receipt Date: 20070611
  Transmission Date: 20080115
  Serious: Yes (Other)
  Sender: FDA-Public Use
  Company Number: 200711538BWH

PATIENT
  Sex: Male

DRUGS (3)
  1. AVELOX [Suspect]
     Dosage: ORAL
     Route: 048
  2. CRESTOR [Concomitant]
  3. ASPIRIN [Concomitant]

REACTIONS (2)
  - ANAPHYLACTIC REACTION [None]
  - PRURITUS [None]
